FAERS Safety Report 24649148 (Version 2)
Quarter: 2024Q4

REPORT INFORMATION
  Report Type: Spontaneous
  Country: US (occurrence: US)
  Receive Date: 20241121
  Receipt Date: 20241220
  Transmission Date: 20250114
  Serious: No
  Sender: SANOFI AVENTIS
  Company Number: US-SA-2024SA339173

PATIENT
  Sex: Female
  Weight: 68.18 kg

DRUGS (10)
  1. DUPIXENT [Suspect]
     Active Substance: DUPILUMAB
     Indication: Eosinophilic oesophagitis
     Dosage: 300 MG, QW
     Route: 058
  2. ADALIMUMAB-ADAZ [Suspect]
     Active Substance: ADALIMUMAB-ADAZ
     Dosage: UNK
  3. OFLOXACIN [Concomitant]
     Active Substance: OFLOXACIN
  4. SPIRONOLACTONE [Concomitant]
     Active Substance: SPIRONOLACTONE
  5. TRIAMCINOLONE ACETONIDE [Concomitant]
     Active Substance: TRIAMCINOLONE ACETONIDE
  6. DESVENLAFAXINE SUCCINATE [Concomitant]
     Active Substance: DESVENLAFAXINE SUCCINATE
  7. CLOBETASOL PROPIONATE [Concomitant]
     Active Substance: CLOBETASOL PROPIONATE
  8. CEFDINIR [Concomitant]
     Active Substance: CEFDINIR
  9. VITAMIN D2 [Concomitant]
     Active Substance: ERGOCALCIFEROL
  10. WEGOVY [Concomitant]
     Active Substance: SEMAGLUTIDE

REACTIONS (9)
  - Pain [Unknown]
  - Respiratory disorder [Unknown]
  - Nausea [Unknown]
  - Abdominal pain upper [Unknown]
  - Psoriasis [Unknown]
  - Fatigue [Unknown]
  - Immune system disorder [Unknown]
  - Headache [Unknown]
  - Sinusitis [Unknown]
